FAERS Safety Report 23565856 (Version 1)
Quarter: 2024Q1

REPORT INFORMATION
  Report Type: Spontaneous
  Country: US (occurrence: None)
  Receive Date: 20240224
  Receipt Date: 20240224
  Transmission Date: 20240410
  Serious: Yes (Hospitalization)
  Sender: FDA-Public Use
  Company Number: None

PATIENT
  Age: 34 Year
  Sex: Female
  Weight: 63.5 kg

DRUGS (16)
  1. TAXOL [Suspect]
     Active Substance: PACLITAXEL
     Dates: end: 20231213
  2. PERTUZUMAB [Suspect]
     Active Substance: PERTUZUMAB
     Dates: end: 20240117
  3. HERCEPTIN [Suspect]
     Active Substance: TRASTUZUMAB
     Dates: end: 20240117
  4. ALBUTEROL [Concomitant]
  5. ALPRAZOLAM [Concomitant]
  6. ANUSOL-HC [Concomitant]
     Active Substance: HYDROCORTISONE
  7. CODEINE-GUAIFENESIN [Concomitant]
     Active Substance: CODEINE PHOSPHATE\GUAIFENESIN
  8. DIPHENHYD/LIDOCAINE [Concomitant]
  9. IBUPROFEN [Concomitant]
     Active Substance: IBUPROFEN
  10. LOMOTIL [Concomitant]
     Active Substance: ATROPINE SULFATE\DIPHENOXYLATE HYDROCHLORIDE
  11. METHYLPREDNISOLONE [Concomitant]
  12. PANTOPRAZOLE [Concomitant]
  13. TESSALON PERLES [Concomitant]
  14. TYLENOL [Concomitant]
  15. VALTREX [Concomitant]
  16. ZOFRAN [Concomitant]

REACTIONS (11)
  - Malaise [None]
  - Headache [None]
  - Breast pain [None]
  - Post procedural complication [None]
  - Neck pain [None]
  - Dizziness [None]
  - Erythema [None]
  - Breast tenderness [None]
  - Sepsis [None]
  - Device related infection [None]
  - Breast swelling [None]

NARRATIVE: CASE EVENT DATE: 20240206
